FAERS Safety Report 19512984 (Version 1)
Quarter: 2021Q3

REPORT INFORMATION
  Report Type: Spontaneous
  Country: CN (occurrence: CN)
  Receive Date: 20210709
  Receipt Date: 20210709
  Transmission Date: 20211014
  Serious: Yes (Other)
  Sender: FDA-Public Use
  Company Number: CN-PFIZER INC-2021791118

PATIENT
  Age: 58 Year
  Sex: Male

DRUGS (3)
  1. FLUCONAZOLE/SODIUM CHLORIDE [Concomitant]
     Active Substance: FLUCONAZOLE
     Indication: INFECTION
     Dosage: 0.4 G, 1X/DAY
     Dates: start: 20191206
  2. LINEZOLID. [Suspect]
     Active Substance: LINEZOLID
     Indication: INFECTION
     Dosage: 600 MG, 2X/DAY (Q12H)
     Dates: start: 20191217, end: 20191219
  3. MEROPENEM. [Concomitant]
     Active Substance: MEROPENEM
     Indication: INFECTION
     Dosage: 1 G, 3X/DAY (Q8H)
     Dates: start: 20191209

REACTIONS (1)
  - Drug-induced liver injury [Recovered/Resolved]

NARRATIVE: CASE EVENT DATE: 201912
